FAERS Safety Report 9005636 (Version 1)
Quarter: 2013Q1

REPORT INFORMATION
  Report Type: Spontaneous
  Country: US (occurrence: US)
  Receive Date: 20130109
  Receipt Date: 20130109
  Transmission Date: 20140127
  Serious: Yes (Other)
  Sender: FDA-Public Use
  Company Number: US-MERCK-1301USA001564

PATIENT
  Age: 32 Year
  Sex: Male

DRUGS (4)
  1. SINGULAIR [Suspect]
     Dosage: 10 MG, QD
     Route: 048
  2. NASONEX [Suspect]
     Route: 045
  3. ALLEGRA [Suspect]
     Route: 048
  4. ELIDEL [Suspect]
     Route: 061

REACTIONS (3)
  - Night blindness [Unknown]
  - Vision blurred [Unknown]
  - Cataract [Unknown]
